FAERS Safety Report 5477366-7 (Version None)
Quarter: 2007Q4

REPORT INFORMATION
  Report Type: 
  Country: None (occurrence: None)
  Receive Date: 20071004
  Receipt Date: 20070925
  Transmission Date: 20080405
  Serious: Yes (Other)
  Sender: FDA-Public Use
  Company Number: JP-PFIZER INC-2007070251

PATIENT
  Age: 95 Year
  Sex: Female

DRUGS (1)
  1. CEFOBID IV [Suspect]
     Dosage: DAILY DOSE:2GRAM
     Dates: start: 20070818, end: 20070818

REACTIONS (1)
  - SEPTIC SHOCK [None]
